FAERS Safety Report 19471737 (Version 1)
Quarter: 2021Q2

REPORT INFORMATION
  Report Type: Spontaneous
  Country: CN (occurrence: CN)
  Receive Date: 20210628
  Receipt Date: 20210628
  Transmission Date: 20210717
  Serious: Yes (Hospitalization)
  Sender: FDA-Public Use
  Company Number: CN-BAXTER-2021BAX017942

PATIENT
  Age: 14 Year
  Sex: Female
  Weight: 56 kg

DRUGS (2)
  1. HOLOXAN [Suspect]
     Active Substance: IFOSFAMIDE
     Indication: OSTEOSARCOMA
     Dosage: IFOSFAMIDE 4 G + SODIUM CHLORIDE 500 ML
     Route: 041
     Dates: start: 20210505, end: 20210509
  2. 0.9% SODIUM CHLORIDE INJECTION [Suspect]
     Active Substance: SODIUM CHLORIDE
     Indication: MEDICATION DILUTION
     Dosage: IFOSFAMIDE 4 G + SODIUM CHLORIDE 500 ML
     Route: 041
     Dates: start: 20210505, end: 20210509

REACTIONS (1)
  - Myelosuppression [Recovering/Resolving]

NARRATIVE: CASE EVENT DATE: 20210515
